FAERS Safety Report 16986267 (Version 4)
Quarter: 2019Q4

REPORT INFORMATION
  Report Type: Report from Study
  Country: FR (occurrence: FR)
  Receive Date: 20191101
  Receipt Date: 20191219
  Transmission Date: 20200122
  Serious: Yes (Life-Threatening, Hospitalization)
  Sender: FDA-Public Use
  Company Number: NVSC2019FR005217

PATIENT
  Age: 51 Year
  Sex: Male
  Weight: 110 kg

DRUGS (20)
  1. FUNGIZONE [Concomitant]
     Active Substance: AMPHOTERICIN B
     Indication: OROPHARYNGEAL CANDIDIASIS
     Route: 065
     Dates: start: 20191007, end: 20191029
  2. CANAKINUMAB. [Suspect]
     Active Substance: CANAKINUMAB
     Indication: NON-SMALL CELL LUNG CANCER
  3. AMOXICILLINE [Concomitant]
     Active Substance: AMOXICILLIN
     Indication: BRONCHITIS
     Dosage: UNK
     Route: 065
     Dates: start: 20190913, end: 20190920
  4. CANAKINUMAB. [Suspect]
     Active Substance: CANAKINUMAB
     Indication: NON-SMALL CELL LUNG CANCER
     Dosage: UNK
     Route: 058
     Dates: start: 20191002, end: 20191002
  5. OFLOXACIN. [Concomitant]
     Active Substance: OFLOXACIN
     Indication: BRONCHITIS
     Dosage: UNK
     Route: 065
     Dates: start: 20190923, end: 20190930
  6. PARACETAMOL [Concomitant]
     Active Substance: ACETAMINOPHEN
     Indication: BRONCHITIS
  7. DOCETAXEL COMP-DOC+CONSOLINF [Suspect]
     Active Substance: DOCETAXEL
     Indication: NON-SMALL CELL LUNG CANCER
     Dosage: 75 MG/M2, Q3W
     Route: 042
     Dates: start: 20191002, end: 20191002
  8. MYCOSTATINE [Concomitant]
     Active Substance: NYSTATIN
     Indication: OROPHARYNGEAL CANDIDIASIS
     Route: 065
     Dates: start: 20191007, end: 20191029
  9. BIPRETERAX [Concomitant]
     Active Substance: INDAPAMIDE\PERINDOPRIL
     Indication: HYPERTENSION
     Dosage: UNK
     Route: 065
     Dates: start: 20120101
  10. SERESTA [Concomitant]
     Active Substance: OXAZEPAM
     Indication: ANXIETY
     Dosage: UNK
     Route: 065
     Dates: start: 20190923, end: 20190930
  11. SERESTA [Concomitant]
     Active Substance: OXAZEPAM
     Dosage: UNK
     Route: 065
     Dates: start: 20190923, end: 20190930
  12. XARELTO [Concomitant]
     Active Substance: RIVAROXABAN
     Indication: PROPHYLAXIS
     Route: 065
     Dates: start: 20191001
  13. CACIT [Concomitant]
     Indication: HYPOCALCAEMIA
     Dosage: UNK
     Route: 065
     Dates: start: 20181121
  14. CORDARONE [Concomitant]
     Active Substance: AMIODARONE HYDROCHLORIDE
     Indication: PROPHYLAXIS
     Route: 065
     Dates: start: 20191001
  15. PARACETAMOL [Concomitant]
     Active Substance: ACETAMINOPHEN
     Indication: PYREXIA
     Dosage: UNK
     Route: 065
     Dates: start: 20190918
  16. BIPRETERAX [Concomitant]
     Active Substance: INDAPAMIDE\PERINDOPRIL
     Route: 065
     Dates: start: 20120101
  17. AMOXICILLINE [Concomitant]
     Active Substance: AMOXICILLIN
     Dosage: UNK
     Route: 065
     Dates: start: 20190913, end: 20190920
  18. ALPRAZOLAM. [Concomitant]
     Active Substance: ALPRAZOLAM
     Indication: ANXIETY
     Dosage: UNK
     Route: 065
     Dates: start: 20190930
  19. PAROXETINE. [Concomitant]
     Active Substance: PAROXETINE
     Indication: ANXIETY
     Dosage: UNK
     Route: 065
     Dates: start: 20191001
  20. PAROXETINE. [Concomitant]
     Active Substance: PAROXETINE
     Indication: DEPRESSION

REACTIONS (1)
  - Infection [Recovered/Resolved]

NARRATIVE: CASE EVENT DATE: 20191005
